FAERS Safety Report 4983753-3 (Version None)
Quarter: 2006Q1

REPORT INFORMATION
  Report Type: 
  Country: None (occurrence: None)
  Receive Date: 20060301
  Receipt Date: 20050314
  Transmission Date: 20060701
  Serious: Yes (Hospitalization)
  Sender: FDA-Public Use
  Company Number: 2005-126507-NL

PATIENT
  Age: 62 Year
  Sex: Female
  Weight: 57.7 kg

DRUGS (5)
  1. REMERON SOLTAB [Suspect]
     Indication: DEPRESSION
     Dosage: 7.5 MG QD ORAL
     Route: 048
     Dates: start: 20050311, end: 20050312
  2. REMERON SOLTAB [Suspect]
     Indication: PANIC ATTACK
     Dosage: 7.5 MG QD ORAL
     Route: 048
     Dates: start: 20050311, end: 20050312
  3. REMERON SOLTAB [Suspect]
     Indication: DEPRESSION
     Dosage: 15 MG QD ORAL
     Route: 048
     Dates: start: 20050313
  4. REMERON SOLTAB [Suspect]
     Indication: PANIC ATTACK
     Dosage: 15 MG QD ORAL
     Route: 048
     Dates: start: 20050313
  5. ZOCOR [Concomitant]

REACTIONS (1)
  - RASH [None]
